FAERS Safety Report 8926465 (Version 1)
Quarter: 2012Q4

REPORT INFORMATION
  Report Type: 
  Country: KR (occurrence: KR)
  Receive Date: 20121127
  Receipt Date: 20121127
  Transmission Date: 20130627
  Serious: Yes (Death, Other)
  Sender: FDA-Public Use
  Company Number: KR-ELI_LILLY_AND_COMPANY-KR201211006866

PATIENT
  Age: 74 Year
  Sex: Male

DRUGS (3)
  1. HUMALOG 25% LISPRO, 75% NPL [Suspect]
     Indication: TYPE 2 DIABETES MELLITUS
     Dosage: 36 u, qd
     Route: 058
     Dates: start: 201211
  2. HUMULIN NPH [Suspect]
     Indication: TYPE 2 DIABETES MELLITUS
     Dosage: UNK
     Dates: end: 201211
  3. ORAL ANTIDIABETICS [Concomitant]

REACTIONS (3)
  - Death [Fatal]
  - Cardiac disorder [Not Recovered/Not Resolved]
  - Chest pain [Unknown]
